FAERS Safety Report 4284507-6 (Version None)
Quarter: 2004Q1

REPORT INFORMATION
  Report Type: 
  Country: None (occurrence: None)
  Receive Date: 20040130
  Receipt Date: 20040130
  Transmission Date: 20041129
  Serious: Yes (Life-Threatening, Hospitalization)
  Sender: FDA-Public Use
  Company Number: None

PATIENT
  Age: 55 Year
  Sex: Male
  Weight: 95 kg

DRUGS (5)
  1. ZOSYN [Suspect]
     Indication: ASPIRATION
     Dates: start: 20040121, end: 20040122
  2. ZOSYN [Suspect]
     Indication: PNEUMONIA
     Dates: start: 20040121, end: 20040122
  3. DOBUTAMINE HCL [Concomitant]
  4. PROTONIX [Concomitant]
  5. FENTANYL [Concomitant]

REACTIONS (1)
  - PLATELET COUNT DECREASED [None]
